FAERS Safety Report 5176455-4 (Version None)
Quarter: 2006Q4

REPORT INFORMATION
  Report Type: 
  Country: None (occurrence: None)
  Receive Date: 20061207
  Receipt Date: 20061123
  Transmission Date: 20070319
  Serious: Yes (Hospitalization, Disabling)
  Sender: FDA-Public Use
  Company Number: US018441

PATIENT
  Age: 39 Year
  Sex: Female

DRUGS (3)
  1. MODAFINIL [Suspect]
     Indication: HYPERSOMNIA
     Dosage: 600 MG QD ORAL
     Route: 048
     Dates: start: 20050101, end: 20060801
  2. MODAFINIL [Suspect]
     Indication: HYPERSOMNIA
     Dosage: 300 MG QD ORAL
     Route: 048
     Dates: start: 20061001
  3. IKARAN ^EXEL^ [Concomitant]

REACTIONS (2)
  - ANXIETY [None]
  - HYPOTONIA [None]
